FAERS Safety Report 7229881-3 (Version None)
Quarter: 2011Q1

REPORT INFORMATION
  Report Type: 
  Country: None (occurrence: None)
  Receive Date: 20110117
  Receipt Date: 20110112
  Transmission Date: 20110831
  Serious: Yes (Other)
  Sender: FDA-Public Use
  Company Number: US-PFIZER INC-2011008674

PATIENT
  Sex: Female

DRUGS (1)
  1. DETROL LA [Suspect]
     Dosage: UNK

REACTIONS (4)
  - HALLUCINATION [None]
  - COMPUTERISED TOMOGRAM ABNORMAL [None]
  - CHEST PAIN [None]
  - MUSCLE SPASMS [None]
